FAERS Safety Report 19477214 (Version 1)
Quarter: 2021Q2

REPORT INFORMATION
  Report Type: Spontaneous
  Country: US (occurrence: US)
  Receive Date: 20210630
  Receipt Date: 20210630
  Transmission Date: 20210717
  Serious: Yes (Hospitalization)
  Sender: FDA-Public Use
  Company Number: None

PATIENT
  Age: 71 Year
  Sex: Male
  Weight: 61 kg

DRUGS (2)
  1. DAUNORUBICIN [Suspect]
     Active Substance: DAUNORUBICIN
     Dates: end: 20210605
  2. CYTARABINE. [Suspect]
     Active Substance: CYTARABINE
     Dates: end: 20210610

REACTIONS (11)
  - Sputum culture positive [None]
  - Ear infection [None]
  - Neutrophil count decreased [None]
  - Bacteraemia [None]
  - Pyrexia [None]
  - Bacterial infection [None]
  - Fungal infection [None]
  - Ear pain [None]
  - Leptotrichia infection [None]
  - Product contamination microbial [None]
  - Lung opacity [None]

NARRATIVE: CASE EVENT DATE: 20210625
